FAERS Safety Report 25872565 (Version 1)
Quarter: 2025Q4

REPORT INFORMATION
  Report Type: Spontaneous
  Country: US (occurrence: US)
  Receive Date: 20251002
  Receipt Date: 20251002
  Transmission Date: 20260118
  Serious: No
  Sender: SANOFI AVENTIS
  Company Number: US-SA-2025SA016771

PATIENT
  Sex: Male
  Weight: 66.667 kg

DRUGS (1)
  1. CEREZYME [Suspect]
     Active Substance: IMIGLUCERASE
     Indication: Gaucher^s disease
     Dosage: 3000 U, QOW
     Route: 042
     Dates: start: 201608

REACTIONS (1)
  - Weight increased [Unknown]
